FAERS Safety Report 18893465 (Version 1)
Quarter: 2021Q1

REPORT INFORMATION
  Report Type: Other
  Country: NL (occurrence: NL)
  Receive Date: 20210215
  Receipt Date: 20210215
  Transmission Date: 20210420
  Serious: Yes (Hospitalization)
  Sender: FDA-Public Use
  Company Number: NL-MERZ PHARMACEUTICALS GMBH-19-01606

PATIENT
  Age: 70 Year
  Sex: Female

DRUGS (3)
  1. BOTULINUM TOXIN TYPE A [Suspect]
     Active Substance: BOTULINUM TOXIN TYPE A
     Indication: DYSPHAGIA
     Route: 030
  2. LEVEMIR [Concomitant]
     Active Substance: INSULIN DETEMIR
     Indication: TYPE 2 DIABETES MELLITUS
  3. NOVORAPID [Concomitant]
     Active Substance: INSULIN ASPART
     Indication: TYPE 2 DIABETES MELLITUS

REACTIONS (4)
  - Spinal cord compression [Recovered/Resolved with Sequelae]
  - Intervertebral discitis [Recovered/Resolved]
  - Off label use [Unknown]
  - Pharyngeal abscess [Recovered/Resolved]
